FAERS Safety Report 7677619-8 (Version None)
Quarter: 2011Q3

REPORT INFORMATION
  Report Type: 
  Country: None (occurrence: None)
  Receive Date: 20110811
  Receipt Date: 20110805
  Transmission Date: 20111222
  Serious: Yes (Hospitalization)
  Sender: FDA-Public Use
  Company Number: BR-ROCHE-754193

PATIENT
  Sex: Female
  Weight: 73.5 kg

DRUGS (8)
  1. TRASTUZUMAB [Suspect]
     Dosage: LOADING DOSE TAKEN AS PER THE PROTOCOL
     Route: 042
     Dates: start: 20101216
  2. DOCETAXEL [Suspect]
     Dosage: LAST DOSE PRIOR TO SAE:6 JAN 2011, FREQUENCY:21/21, DOSAGE FORM: INFUSION, DOSE:75 MG/M2
     Route: 042
     Dates: start: 20101216
  3. FILGRASTIME [Concomitant]
     Dates: start: 20110113, end: 20110114
  4. TRASTUZUMAB [Suspect]
     Dosage: LAST DOSE PRIOR TO SAE:6 JAN 2011, FREQUENCY:21/21, DOSAGE FORM: INFUSION, MAINTENANCE  DOSE
     Route: 042
  5. PERTUZUMAB [Suspect]
     Dosage: LOADING DOSE TAKEN AS PER THE PROTOCOL
     Route: 042
     Dates: start: 20101216
  6. PERTUZUMAB [Suspect]
     Dosage: LAST DOSE PRIOR TO SAE:6 JAN 2011, FREQUENCY:21/21, DOSAGE FORM: INFUSION, MAINTENENCE  DOSE
     Route: 042
  7. CARBOPLATIN [Suspect]
     Dosage: LAST DOSE PRIOR TO SAE:6 JAN 2011, FREQUENCY:21/21, DOSAGE FORM: INFUSION, DOSE 6 AUC
     Route: 042
     Dates: start: 20101216
  8. OMEPRAZOLE [Concomitant]
     Dates: start: 20101216

REACTIONS (2)
  - FEBRILE NEUTROPENIA [None]
  - NEUTROPENIC SEPSIS [None]
